FAERS Safety Report 20636749 (Version 2)
Quarter: 2022Q1

REPORT INFORMATION
  Report Type: Spontaneous
  Country: US (occurrence: None)
  Receive Date: 20220325
  Receipt Date: 20220330
  Transmission Date: 20220423
  Serious: No
  Sender: FDA-Public Use
  Company Number: 2022A120354

PATIENT
  Age: 15132 Day
  Sex: Female

DRUGS (2)
  1. EVUSHELD [Suspect]
     Active Substance: CILGAVIMAB\TIXAGEVIMAB
     Route: 030
     Dates: start: 20220318
  2. CILGAVIMAB [Concomitant]
     Active Substance: CILGAVIMAB
     Dosage: 300.0MG ONCE/SINGLE ADMINISTRATION
     Dates: start: 20220318

REACTIONS (3)
  - Incorrect dose administered by device [Unknown]
  - Product physical issue [Unknown]
  - Device use error [Unknown]

NARRATIVE: CASE EVENT DATE: 20220318
